FAERS Safety Report 19224929 (Version 2)
Quarter: 2022Q2

REPORT INFORMATION
  Report Type: Spontaneous
  Country: US (occurrence: None)
  Receive Date: 20210505
  Receipt Date: 20220426
  Transmission Date: 20220721
  Serious: No
  Sender: FDA-Public Use
  Company Number: US-ROCHE-2672932

PATIENT
  Sex: Male

DRUGS (4)
  1. ESBRIET [Suspect]
     Active Substance: PIRFENIDONE
     Indication: Idiopathic pulmonary fibrosis
     Dosage: 1 TABLET 3 TIMES DAILY WEEK 1
     Route: 048
     Dates: start: 202008
  2. ESBRIET [Suspect]
     Active Substance: PIRFENIDONE
     Dosage: 2 TABLETS 3 TIMES DAILY WEEK 2
     Route: 048
     Dates: start: 202008
  3. ESBRIET [Suspect]
     Active Substance: PIRFENIDONE
     Dosage: 3 TABLETS 3 TIMES DAILY
     Route: 048
     Dates: start: 202008
  4. ESBRIET [Suspect]
     Active Substance: PIRFENIDONE
     Dosage: 3 TIMES A DAY
     Route: 048
     Dates: start: 20200819

REACTIONS (6)
  - Nausea [Unknown]
  - Decreased appetite [Unknown]
  - Memory impairment [Unknown]
  - Decreased appetite [Unknown]
  - Abdominal discomfort [Unknown]
  - Hyperhidrosis [Unknown]
